FAERS Safety Report 13926862 (Version 1)
Quarter: 2017Q3

REPORT INFORMATION
  Report Type: Spontaneous
  Country: FR (occurrence: FR)
  Receive Date: 20170901
  Receipt Date: 20170901
  Transmission Date: 20171127
  Serious: Yes (Other)
  Sender: FDA-Public Use
  Company Number: FR-BAYER-2017-167973

PATIENT
  Age: 35 Year
  Sex: Female

DRUGS (1)
  1. MIRENA [Suspect]
     Active Substance: LEVONORGESTREL
     Indication: CONTRACEPTION
     Dosage: 20 MCG/24HR, CONT
     Route: 015
     Dates: start: 20071016, end: 20170516

REACTIONS (15)
  - Eye irritation [Unknown]
  - Headache [Unknown]
  - Migraine [Unknown]
  - Acne [Unknown]
  - Hypertrichosis [Unknown]
  - Loss of libido [Unknown]
  - Alopecia [Unknown]
  - Tinnitus [Not Recovered/Not Resolved]
  - Depressed mood [Unknown]
  - Nervousness [Unknown]
  - Back pain [Recovering/Resolving]
  - Depression [Unknown]
  - Blindness [Unknown]
  - Weight increased [Recovering/Resolving]
  - Pain in extremity [Unknown]
